FAERS Safety Report 8237236-8 (Version None)
Quarter: 2012Q1

REPORT INFORMATION
  Report Type: 
  Country: None (occurrence: None)
  Receive Date: 20120327
  Receipt Date: 20120321
  Transmission Date: 20120608
  Serious: Yes (Other)
  Sender: FDA-Public Use
  Company Number: US-PFIZER INC-2012074484

PATIENT
  Sex: Female
  Weight: 62.132 kg

DRUGS (8)
  1. MORPHINE SULFATE [Suspect]
     Dosage: UNK
  2. LYRICA [Suspect]
     Dosage: 50 MG CAPSULE FOUR A DAY
     Route: 048
  3. OXYCODONE HCL [Suspect]
     Dosage: UNK
  4. PANCRELIPASE [Concomitant]
     Indication: PANCREATITIS
     Dosage: 2 DF OF '500 UNITS', 3X/DAY
  5. LYRICA [Suspect]
     Dosage: 100 MG CAPSULES TWO A DAY
     Route: 048
  6. TRAMADOL [Concomitant]
     Dosage: 50 MG FOUR A DAY
  7. TRAMADOL [Concomitant]
     Dosage: 50 MG EIGHT A DAY
  8. LYRICA [Suspect]
     Indication: NEURALGIA
     Dosage: 25 MG CAPSULES EIGHT A DAY
     Route: 048

REACTIONS (8)
  - HEADACHE [None]
  - JOINT SWELLING [None]
  - BALANCE DISORDER [None]
  - BLINDNESS [None]
  - DRUG INEFFECTIVE [None]
  - DRUG INTOLERANCE [None]
  - SOMNOLENCE [None]
  - ACTIVITIES OF DAILY LIVING IMPAIRED [None]
